FAERS Safety Report 5467277-5 (Version None)
Quarter: 2007Q3

REPORT INFORMATION
  Report Type: 
  Country: None (occurrence: None)
  Receive Date: 20070925
  Receipt Date: 20070914
  Transmission Date: 20080115
  Serious: Yes (Death)
  Sender: FDA-Public Use
  Company Number: GB-SANOFI-SYNTHELABO-A01200710404

PATIENT
  Age: 36 Year
  Sex: Male

DRUGS (3)
  1. VASCULAR ENDOTHELIAL GROWTH FACTOR INHIBITOR NOS. [Concomitant]
     Indication: COLORECTAL CANCER
     Route: 065
  2. XELODA [Suspect]
     Route: 065
  3. OXALIPLATIN [Suspect]
     Indication: COLORECTAL CANCER
     Route: 065

REACTIONS (1)
  - CARDIAC ARREST [None]
